FAERS Safety Report 6540605-5 (Version None)
Quarter: 2010Q1

REPORT INFORMATION
  Report Type: 
  Country: None (occurrence: None)
  Receive Date: 20100112
  Receipt Date: 20091022
  Transmission Date: 20100710
  Serious: No
  Sender: FDA-Public Use
  Company Number: 2009-00685

PATIENT
  Age: 56 Year
  Sex: Female
  Weight: 51.7101 kg

DRUGS (7)
  1. COLD REMEDY GEL SWABS [Suspect]
     Dosage: SPORADIC - 6 YEARS, 6 YEARS AGO-RECENT
  2. LEVOTHYROXINE SODIUM [Concomitant]
  3. FISH OIL [Concomitant]
  4. CALCIUM [Concomitant]
  5. VITAMIN D 3 [Concomitant]
  6. MULTI-VITAMIN [Concomitant]
  7. NASOCORT NASAL SPRAY [Concomitant]

REACTIONS (1)
  - ANOSMIA [None]
